FAERS Safety Report 8271225-2 (Version None)
Quarter: 2012Q2

REPORT INFORMATION
  Report Type: 
  Country: None (occurrence: None)
  Receive Date: 20120406
  Receipt Date: 20120329
  Transmission Date: 20120825
  Serious: Yes (Death)
  Sender: FDA-Public Use
  Company Number: ADR-2012-00644

PATIENT

DRUGS (2)
  1. LIORESAL [Suspect]
  2. LIORESAL [Concomitant]

REACTIONS (1)
  - ENTEROBIASIS [None]
